FAERS Safety Report 5586880-5 (Version None)
Quarter: 2008Q1

REPORT INFORMATION
  Report Type: 
  Country: None (occurrence: None)
  Receive Date: 20080108
  Receipt Date: 20080108
  Transmission Date: 20080703
  Serious: Yes (Other)
  Sender: FDA-Public Use
  Company Number: None

PATIENT
  Age: 30 Year
  Sex: Female
  Weight: 60.782 kg

DRUGS (1)
  1. CHANTIX [Suspect]
     Indication: SMOKING CESSATION THERAPY
     Dosage: STARTER PACK   PO
     Route: 048
     Dates: start: 20071117, end: 20071215

REACTIONS (8)
  - ANGER [None]
  - CRYING [None]
  - DISTURBANCE IN ATTENTION [None]
  - DYSPHONIA [None]
  - IMPAIRED WORK ABILITY [None]
  - MANIA [None]
  - MOOD SWINGS [None]
  - SUICIDAL IDEATION [None]
